FAERS Safety Report 19265314 (Version 1)
Quarter: 2021Q2

REPORT INFORMATION
  Report Type: Spontaneous
  Country: GB (occurrence: GB)
  Receive Date: 20210517
  Receipt Date: 20210517
  Transmission Date: 20210717
  Serious: No
  Sender: FDA-Public Use
  Company Number: GB-GW PHARMA-202105GBGW02352

PATIENT

DRUGS (1)
  1. EPIDYOLEX [Suspect]
     Active Substance: CANNABIDIOL
     Indication: PRODUCT USED FOR UNKNOWN INDICATION
     Dosage: UNKNOWN DOSE (FOR AROUND 6 MONTHS)
     Route: 048
     Dates: start: 2020

REACTIONS (1)
  - Weight increased [Unknown]
